FAERS Safety Report 20154891 (Version 2)
Quarter: 2022Q4

REPORT INFORMATION
  Report Type: Spontaneous
  Country: CA (occurrence: CA)
  Receive Date: 20211207
  Receipt Date: 20221115
  Transmission Date: 20230112
  Serious: Yes (Disabling, Other)
  Sender: FDA-Public Use
  Company Number: CA-TEVA-2021-CA-1983652

PATIENT
  Sex: Female
  Weight: 77 kg

DRUGS (7)
  1. RISPERIDONE [Suspect]
     Active Substance: RISPERIDONE
     Indication: Psychotic disorder
     Route: 065
  2. ABILIFY [Suspect]
     Active Substance: ARIPIPRAZOLE
     Indication: Psychotic disorder
     Route: 030
  3. EPIVAL [Suspect]
     Active Substance: DIVALPROEX SODIUM
     Indication: Bipolar disorder
     Route: 065
  4. CELEXA [Suspect]
     Active Substance: CITALOPRAM HYDROBROMIDE
     Indication: Bipolar disorder
     Route: 065
  5. ASPIRIN [Concomitant]
     Active Substance: ASPIRIN
     Indication: Product used for unknown indication
     Route: 065
  6. OMEGA - 3 [Concomitant]
     Indication: Product used for unknown indication
     Route: 065
  7. CALCIUM + MAGNESIUM [Concomitant]
     Indication: Product used for unknown indication

REACTIONS (5)
  - Fatigue [Unknown]
  - Pain in extremity [Unknown]
  - Somnolence [Unknown]
  - Urinary incontinence [Unknown]
  - Weight increased [Unknown]
